FAERS Safety Report 4847886-4 (Version None)
Quarter: 2005Q4

REPORT INFORMATION
  Report Type: 
  Country: None (occurrence: None)
  Receive Date: 20051207
  Receipt Date: 20051207
  Transmission Date: 20060501
  Serious: Yes (Life-Threatening, Hospitalization)
  Sender: FDA-Public Use
  Company Number: None

PATIENT
  Age: 58 Year
  Sex: Female
  Weight: 68.0396 kg

DRUGS (2)
  1. PAXIL [Suspect]
     Indication: ANXIETY
     Dates: start: 20001001, end: 20041201
  2. PAXIL [Suspect]
     Indication: DEPRESSION
     Dates: start: 20001001, end: 20041201

REACTIONS (7)
  - ANGER [None]
  - CRYING [None]
  - DRUG INEFFECTIVE [None]
  - IMPRISONMENT [None]
  - IRRITABILITY [None]
  - SUICIDAL IDEATION [None]
  - SUICIDE ATTEMPT [None]
